FAERS Safety Report 4619851-3 (Version None)
Quarter: 2005Q1

REPORT INFORMATION
  Report Type: 
  Country: None (occurrence: None)
  Receive Date: 20050328
  Receipt Date: 20050316
  Transmission Date: 20050727
  Serious: Yes (Other)
  Sender: FDA-Public Use
  Company Number: US-JNJFOC-20050304721

PATIENT
  Sex: Female
  Weight: 88.91 kg

DRUGS (4)
  1. REMICADE [Suspect]
     Indication: ILEITIS
     Route: 042
  2. REMICADE [Suspect]
     Indication: CROHN'S DISEASE
     Route: 042
  3. AZATHIOPRINE [Concomitant]
  4. ENTOCORT [Concomitant]

REACTIONS (3)
  - ABORTION SPONTANEOUS [None]
  - CROHN'S DISEASE [None]
  - DRUG EXPOSURE DURING PREGNANCY [None]
